FAERS Safety Report 11617963 (Version 1)
Quarter: 2015Q4

REPORT INFORMATION
  Report Type: Spontaneous
  Country: FR (occurrence: FR)
  Receive Date: 20151010
  Receipt Date: 20151010
  Transmission Date: 20160304
  Serious: Yes (Hospitalization, Other)
  Sender: FDA-Public Use
  Company Number: FR-ZYDUS-009196

PATIENT
  Age: 55 Year
  Sex: Male

DRUGS (3)
  1. CARBIDOPA/ENTACAPONE/LEVODOPA [Concomitant]
     Active Substance: CARBIDOPA\ENTACAPONE\LEVODOPA
     Indication: PARKINSON^S DISEASE
     Dosage: 225 MG/DAY
  2. RASAGILINE/RASAGILINE MESYLATE [Concomitant]
     Active Substance: RASAGILINE MESYLATE
     Indication: PARKINSON^S DISEASE
  3. PRAMIPEXOLE/PRAMIPEXOLE DIHYDROCHLORIDE [Suspect]
     Active Substance: PRAMIPEXOLE DIHYDROCHLORIDE
     Indication: PARKINSON^S DISEASE
     Dosage: 1.31 MG PER DAY

REACTIONS (7)
  - Stereotypy [Unknown]
  - Insomnia [Recovered/Resolved]
  - Weight decreased [Recovered/Resolved]
  - Depression [Unknown]
  - Hypersexuality [Recovered/Resolved]
  - Impulse-control disorder [Recovered/Resolved]
  - Suicidal ideation [Unknown]
